FAERS Safety Report 24910244 (Version 1)
Quarter: 2025Q1

REPORT INFORMATION
  Report Type: Report from Study
  Country: CA (occurrence: CA)
  Receive Date: 20250131
  Receipt Date: 20250131
  Transmission Date: 20250409
  Serious: Yes (Other)
  Sender: SANDOZ
  Company Number: CA-SANDOZ-SDZ2025CA005875

PATIENT
  Sex: Female

DRUGS (1)
  1. HYRIMOZ [Suspect]
     Active Substance: ADALIMUMAB-ADAZ
     Indication: Crohn^s disease
     Dosage: UNK, Q2W (EVERY TWO WEEKS)
     Route: 058
     Dates: start: 20240423

REACTIONS (4)
  - Pyoderma gangrenosum [Unknown]
  - General physical health deterioration [Unknown]
  - Faeces soft [Unknown]
  - Arthralgia [Unknown]
